FAERS Safety Report 6237185-0 (Version None)
Quarter: 2009Q2

REPORT INFORMATION
  Report Type: 
  Country: None (occurrence: None)
  Receive Date: 20090619
  Receipt Date: 20090615
  Transmission Date: 20091009
  Serious: Yes (Death)
  Sender: FDA-Public Use
  Company Number: US-AMGEN-US344279

PATIENT
  Sex: Male
  Weight: 82.6 kg

DRUGS (27)
  1. NPLATE [Suspect]
     Indication: THROMBOCYTOPENIA
     Route: 058
     Dates: start: 20090324, end: 20090324
  2. CORTICOSTEROIDS [Concomitant]
     Dates: start: 20070731
  3. DANAZOL [Concomitant]
     Route: 048
     Dates: start: 20090323
  4. ADVAIR HFA [Concomitant]
  5. ALBUTEROL SULFATE [Concomitant]
  6. AMICAR [Concomitant]
     Route: 048
  7. BENADRYL [Concomitant]
     Route: 048
  8. CALTRATE [Concomitant]
     Route: 048
  9. CARAFATE [Concomitant]
     Route: 048
  10. CENTRUM SILVER [Concomitant]
     Route: 048
  11. CYMBALTA [Concomitant]
     Route: 048
  12. DILTIAZEM [Concomitant]
     Route: 048
  13. FOLIC ACID [Concomitant]
     Route: 048
  14. ACETAMINOPHEN AND HYDROCODONE BITARTRATE [Concomitant]
     Route: 048
  15. HYTRIN [Concomitant]
     Route: 048
  16. IMDUR [Concomitant]
     Route: 048
  17. JANUVIA [Concomitant]
     Route: 048
  18. LASIX [Concomitant]
     Route: 048
  19. LISINOPRIL [Concomitant]
     Route: 048
  20. METOPROLOL SUCCINATE [Concomitant]
     Route: 048
  21. NASONEX [Concomitant]
  22. OMEPRAZOLE [Concomitant]
     Route: 048
  23. PRANDIN [Concomitant]
     Route: 048
  24. PREDNISONE [Concomitant]
     Route: 048
  25. ZOCOR [Concomitant]
     Route: 048
  26. ZOLOFT [Concomitant]
     Route: 048
  27. ZYRTEC [Concomitant]
     Route: 048

REACTIONS (2)
  - CARDIAC ARREST [None]
  - DISEASE PROGRESSION [None]
